FAERS Safety Report 12275405 (Version 2)
Quarter: 2016Q2

REPORT INFORMATION
  Report Type: Spontaneous
  Country: US (occurrence: US)
  Receive Date: 20160415
  Receipt Date: 20160512
  Transmission Date: 20160815
  Serious: No
  Sender: FDA-Public Use
  Company Number: US-UCBSA-2015034649

PATIENT
  Sex: Male

DRUGS (1)
  1. NEUPRO [Suspect]
     Active Substance: ROTIGOTINE
     Indication: PRODUCT USED FOR UNKNOWN INDICATION
     Dosage: 8 MG PATCH AS WELL AS CUTTING A 6 MG PATCH IN HALF AND APPLYING THAT HALF AS WELL(11 MG)
     Route: 062

REACTIONS (1)
  - Wrong technique in product usage process [Unknown]
